FAERS Safety Report 4384662-3 (Version None)
Quarter: 2004Q2

REPORT INFORMATION
  Report Type: 
  Country: None (occurrence: None)
  Receive Date: 20040621
  Receipt Date: 20040607
  Transmission Date: 20050107
  Serious: Yes (Hospitalization)
  Sender: FDA-Public Use
  Company Number: 2004IM000684

PATIENT
  Age: 51 Year
  Sex: Female

DRUGS (1)
  1. INFERAX (INTERFERON ALFACON 1) [Suspect]
     Indication: HEPATITIS C
     Dosage: 9 UG; QD; SUBCUTANEOUS
     Route: 058
     Dates: start: 20040312

REACTIONS (3)
  - ABDOMINAL WALL ABSCESS [None]
  - CELLULITIS [None]
  - MEDICATION ERROR [None]
